FAERS Safety Report 7657502-4 (Version None)
Quarter: 2011Q3

REPORT INFORMATION
  Report Type: 
  Country: None (occurrence: None)
  Receive Date: 20110804
  Receipt Date: 20110804
  Transmission Date: 20111222
  Serious: Yes (Other)
  Sender: FDA-Public Use
  Company Number: US-ABBOTT-11P-163-0843864-00

PATIENT
  Sex: Female
  Weight: 50.394 kg

DRUGS (11)
  1. ACNE MEDICATIONS NOS [Concomitant]
     Indication: RASH
     Dosage: FACE, SCALP
     Route: 061
     Dates: start: 20110610, end: 20110611
  2. ANTIBIOTICS [Concomitant]
     Indication: SURGERY
     Dosage: FACE, SCALP
     Route: 061
     Dates: start: 20110701, end: 20110714
  3. VITAMIN B6 [Concomitant]
     Indication: PRODUCT USED FOR UNKNOWN INDICATION
     Route: 048
     Dates: start: 20110530, end: 20110801
  4. ANESTHETICS, LOCAL [Concomitant]
     Indication: SURGERY
     Route: 050
     Dates: start: 20110701, end: 20110731
  5. VITAMIN B-12 [Concomitant]
     Indication: PRODUCT USED FOR UNKNOWN INDICATION
     Route: 048
     Dates: start: 20110530, end: 20110801
  6. MULTI-VITAMINS [Concomitant]
     Indication: PRODUCT USED FOR UNKNOWN INDICATION
     Route: 048
     Dates: start: 20110530, end: 20110801
  7. PROVERA [Concomitant]
     Indication: AMENORRHOEA
     Route: 048
     Dates: start: 20110609, end: 20110613
  8. HUMIRA [Suspect]
     Indication: CROHN'S DISEASE
     Dates: start: 20110530, end: 20110801
  9. FOLIC ACID [Concomitant]
     Indication: PRODUCT USED FOR UNKNOWN INDICATION
     Route: 048
     Dates: start: 20110530, end: 20110801
  10. HUMIRA [Suspect]
     Indication: ANKYLOSING SPONDYLITIS
  11. CALCIUM ACETATE [Concomitant]
     Indication: PRODUCT USED FOR UNKNOWN INDICATION
     Route: 048
     Dates: start: 20110530, end: 20110801

REACTIONS (2)
  - ABORTION SPONTANEOUS [None]
  - RASH [None]
